FAERS Safety Report 5423711-8 (Version None)
Quarter: 2007Q3

REPORT INFORMATION
  Report Type: 
  Country: None (occurrence: None)
  Receive Date: 20070727
  Receipt Date: 20060302
  Transmission Date: 20080115
  Serious: Yes (Hospitalization)
  Sender: FDA-Public Use
  Company Number: THYM-10903

PATIENT
  Age: 61 Year
  Sex: Male
  Weight: 123.9227 kg

DRUGS (9)
  1. THYMOGLOBULIN [Suspect]
     Indication: STEM CELL TRANSPLANT
     Dosage: 0.5 MG/KG ONCE IV
     Route: 042
     Dates: start: 20051212, end: 20051212
  2. ACYCLOVIR [Concomitant]
  3. AMLODIPINE [Concomitant]
  4. AVAPRO [Concomitant]
  5. TOPROL-XL [Concomitant]
  6. POTASSIUM CHLORIDE [Concomitant]
  7. MAGNESIUM OXIDE [Concomitant]
  8. CIPROFLOXACIN [Concomitant]
  9. COLACE [Concomitant]

REACTIONS (1)
  - BACTERAEMIA [None]
